FAERS Safety Report 7360594-3 (Version None)
Quarter: 2011Q1

REPORT INFORMATION
  Report Type: 
  Country: None (occurrence: None)
  Receive Date: 20110318
  Receipt Date: 20110310
  Transmission Date: 20110831
  Serious: Yes (Other)
  Sender: FDA-Public Use
  Company Number: GB-TEVA-270835ISR

PATIENT
  Age: 73 Year
  Sex: Female

DRUGS (1)
  1. INDAPAMIDE [Suspect]

REACTIONS (7)
  - BLOOD CREATINE PHOSPHOKINASE INCREASED [None]
  - MYOPATHY [None]
  - HYPERCALCAEMIA [None]
  - VITAMIN D DEFICIENCY [None]
  - INCLUSION BODY MYOSITIS [None]
  - HYPOCALCIURIA [None]
  - HYPOPHOSPHATAEMIA [None]
